FAERS Safety Report 4880893-4 (Version None)
Quarter: 2005Q4

REPORT INFORMATION
  Report Type: 
  Country: None (occurrence: None)
  Receive Date: 20051223
  Receipt Date: 20051007
  Transmission Date: 20060501
  Serious: No
  Sender: FDA-Public Use
  Company Number: 05P-163-0313219-00

PATIENT
  Age: 48 Year
  Sex: Female
  Weight: 92.5338 kg

DRUGS (3)
  1. HUMIRA [Suspect]
     Indication: RHEUMATOID ARTHRITIS
     Dosage: 40 MG, 1 IN 2 WK, SUBCUTANEOUS
     Route: 058
     Dates: start: 20050825
  2. AMITRIPTYLINE HCL [Suspect]
  3. SERTRALINE HYDROCHLORIDE [Concomitant]

REACTIONS (5)
  - ERYTHEMA [None]
  - FEELING HOT [None]
  - PRURITUS [None]
  - TOOTH INFECTION [None]
  - URTICARIA [None]
